FAERS Safety Report 9787305 (Version 2)
Quarter: 2013Q4

REPORT INFORMATION
  Report Type: Report from Study
  Country: US (occurrence: US)
  Receive Date: 20131230
  Receipt Date: 20131230
  Transmission Date: 20140711
  Serious: Yes (Hospitalization, Other)
  Sender: FDA-Public Use
  Company Number: US-ROCHE-1207401

PATIENT
  Age: 53 Year
  Sex: Male

DRUGS (6)
  1. PEGASYS [Suspect]
     Indication: CHRONIC HEPATITIS C
     Route: 065
     Dates: start: 20130302
  2. COPEGUS [Suspect]
     Indication: CHRONIC HEPATITIS C
     Dosage: DIVIDED DOSES
     Route: 065
     Dates: start: 20130302
  3. COPEGUS [Suspect]
     Dosage: DIVIDED DOSES
     Route: 065
  4. INCIVEK [Suspect]
     Indication: CHRONIC HEPATITIS C
     Dosage: TWO TABLETS, 12 WEEK COMPLETED
     Route: 065
     Dates: start: 20130302
  5. AMITRIPTYLINE [Concomitant]
  6. MELOXICAM [Concomitant]

REACTIONS (27)
  - Thrombosis [Unknown]
  - Cellulitis [Recovered/Resolved]
  - Haematemesis [Recovering/Resolving]
  - Haematemesis [Recovering/Resolving]
  - Swollen tongue [Unknown]
  - Anorectal discomfort [Recovered/Resolved]
  - Musculoskeletal pain [Unknown]
  - Malaise [Unknown]
  - Feeling cold [Unknown]
  - Haemorrhoids [Unknown]
  - Pruritus [Not Recovered/Not Resolved]
  - Acne [Unknown]
  - Blister [Unknown]
  - Anaemia [Unknown]
  - Dermatitis bullous [Not Recovered/Not Resolved]
  - Musculoskeletal pain [Unknown]
  - Arthralgia [Unknown]
  - Lip disorder [Unknown]
  - Pain [Unknown]
  - Arthralgia [Unknown]
  - Drug hypersensitivity [Recovering/Resolving]
  - Pain in extremity [Unknown]
  - Joint lock [Unknown]
  - Intervertebral disc displacement [Unknown]
  - Lip swelling [Unknown]
  - Insomnia [Unknown]
  - Abdominal pain upper [Unknown]
